FAERS Safety Report 9746736 (Version 3)
Quarter: 2013Q4

REPORT INFORMATION
  Report Type: Spontaneous
  Country: BR (occurrence: BR)
  Receive Date: 20131211
  Receipt Date: 20131230
  Transmission Date: 20140711
  Serious: Yes (Hospitalization, Other)
  Sender: FDA-Public Use
  Company Number: BR-JNJFOC-20130910585

PATIENT
  Age: 61 Year
  Sex: Male
  Weight: 96 kg

DRUGS (6)
  1. REMICADE [Suspect]
     Indication: PSORIASIS
     Route: 042
  2. ACETYLSALICYLIC ACID [Concomitant]
     Route: 065
  3. ATORVASTATIN [Concomitant]
     Route: 065
  4. BRILINTA [Concomitant]
     Route: 065
  5. ATENOLOL [Concomitant]
     Route: 065
  6. ENALAPRIL [Concomitant]
     Route: 065

REACTIONS (7)
  - Pulmonary oedema [Unknown]
  - Benign cardiac neoplasm [Unknown]
  - Gait disturbance [Recovered/Resolved]
  - Hypercholesterolaemia [Recovered/Resolved]
  - Diabetes mellitus [Recovered/Resolved]
  - Pain in extremity [Unknown]
  - Swelling [Recovered/Resolved]
